FAERS Safety Report 23643486 (Version 1)
Quarter: 2024Q1

REPORT INFORMATION
  Report Type: Spontaneous
  Country: US (occurrence: None)
  Receive Date: 20240316
  Receipt Date: 20240316
  Transmission Date: 20240410
  Serious: Yes (Hospitalization)
  Sender: FDA-Public Use
  Company Number: None

PATIENT
  Age: 79 Year
  Sex: Female
  Weight: 82.4 kg

DRUGS (3)
  1. DARATUMUMAB\HYALURONIDASE-FIHJ [Suspect]
     Active Substance: DARATUMUMAB\HYALURONIDASE-FIHJ
     Dates: end: 20231220
  2. DEXAMETHASONE [Suspect]
     Active Substance: DEXAMETHASONE
     Dates: end: 20230103
  3. LENALIDOMIDE [Suspect]
     Active Substance: LENALIDOMIDE
     Dates: end: 20230109

REACTIONS (9)
  - Headache [None]
  - Drug ineffective [None]
  - Vision blurred [None]
  - Dyskinesia [None]
  - Product dose omission issue [None]
  - Product size issue [None]
  - Sinus arrhythmia [None]
  - Blood calcium decreased [None]
  - Haemoglobin decreased [None]

NARRATIVE: CASE EVENT DATE: 20240110
